FAERS Safety Report 18833683 (Version 2)
Quarter: 2021Q1

REPORT INFORMATION
  Report Type: Spontaneous
  Country: CA (occurrence: CA)
  Receive Date: 20210203
  Receipt Date: 20210329
  Transmission Date: 20210419
  Serious: Yes (Hospitalization)
  Sender: FDA-Public Use
  Company Number: CA-PFIZER INC-2018490113

PATIENT
  Age: 62 Year
  Sex: Male

DRUGS (3)
  1. SOMAVERT [Suspect]
     Active Substance: PEGVISOMANT
     Indication: ACROMEGALY
     Dosage: 20 MG, THRICE WEEKLY (MONDAY, WEDNESDAY AND FRIDAY)
     Route: 058
     Dates: start: 2018, end: 2020
  2. SIGNIFOR [Concomitant]
     Active Substance: PASIREOTIDE DIASPARTATE
     Dosage: UNK
     Dates: start: 2017
  3. SOMAVERT [Suspect]
     Active Substance: PEGVISOMANT
     Dosage: 30 MG, 1X/DAY
     Route: 058
     Dates: start: 202004

REACTIONS (3)
  - Drug ineffective [Unknown]
  - Off label use [Unknown]
  - Myocardial infarction [Unknown]

NARRATIVE: CASE EVENT DATE: 202009
